FAERS Safety Report 23206010 (Version 1)
Quarter: 2023Q4

REPORT INFORMATION
  Report Type: Spontaneous
  Country: US (occurrence: US)
  Receive Date: 20231120
  Receipt Date: 20231120
  Transmission Date: 20240110
  Serious: No
  Sender: FDA-Public Use
  Company Number: US-GSK-US2023156088

PATIENT
  Age: 75 Year
  Sex: Male

DRUGS (5)
  1. NUCALA [Suspect]
     Active Substance: MEPOLIZUMAB
     Indication: Asthma
     Dosage: UNK
     Dates: start: 20231016, end: 20231016
  2. TRELEGY ELLIPTA [Concomitant]
     Active Substance: FLUTICASONE FUROATE\UMECLIDINIUM BROMIDE\VILANTEROL TRIFENATATE
     Indication: Asthma
     Dosage: UNK
     Dates: start: 2023
  3. FLUTICASONE PROPIONATE [Concomitant]
     Active Substance: FLUTICASONE PROPIONATE
     Indication: Nasal polyps
     Dosage: UNK
  4. ISOSORBIDE DINITRATE [Concomitant]
     Active Substance: ISOSORBIDE DINITRATE
     Indication: Atrioventricular block
     Dosage: 60 MG
  5. LEVOTHYROXINE [Concomitant]
     Active Substance: LEVOTHYROXINE
     Indication: Hypothyroidism
     Dosage: UNK

REACTIONS (4)
  - Injection site rash [Not Recovered/Not Resolved]
  - Injection site warmth [Not Recovered/Not Resolved]
  - Injection site induration [Not Recovered/Not Resolved]
  - Injection site reaction [Not Recovered/Not Resolved]

NARRATIVE: CASE EVENT DATE: 20231018
